FAERS Safety Report 5175671-5 (Version None)
Quarter: 2006Q4

REPORT INFORMATION
  Report Type: 
  Country: None (occurrence: None)
  Receive Date: 20061215
  Receipt Date: 20060623
  Transmission Date: 20070319
  Serious: No
  Sender: FDA-Public Use
  Company Number: US-AMGEN-KDL184209

PATIENT
  Sex: Male
  Weight: 58.6 kg

DRUGS (4)
  1. ENBREL [Suspect]
     Indication: PSORIASIS
     Route: 058
     Dates: start: 20001201
  2. ASCORBIC ACID [Concomitant]
  3. VITAMIN E [Concomitant]
  4. IBUPROFEN [Concomitant]

REACTIONS (4)
  - CONDITION AGGRAVATED [None]
  - ERYTHEMA [None]
  - JOINT STIFFNESS [None]
  - PROSTATITIS [None]
